FAERS Safety Report 5312298-6 (Version None)
Quarter: 2007Q2

REPORT INFORMATION
  Report Type: 
  Country: None (occurrence: None)
  Receive Date: 20070430
  Receipt Date: 20060821
  Transmission Date: 20071010
  Serious: No
  Sender: FDA-Public Use
  Company Number: 2006UW16601

PATIENT
  Age: 48 Year
  Sex: Female
  Weight: 81.2 kg

DRUGS (2)
  1. NEXIUM [Suspect]
     Indication: HIATUS HERNIA
     Route: 048
     Dates: start: 20050101
  2. NEXIUM [Suspect]
     Indication: GASTROOESOPHAGEAL REFLUX DISEASE
     Route: 048
     Dates: start: 20050101

REACTIONS (4)
  - ANXIETY [None]
  - DIZZINESS [None]
  - FATIGUE [None]
  - HEAT EXHAUSTION [None]
